FAERS Safety Report 6341113-7 (Version None)
Quarter: 2009Q3

REPORT INFORMATION
  Report Type: 
  Country: None (occurrence: None)
  Receive Date: 20090904
  Receipt Date: 20090818
  Transmission Date: 20100115
  Serious: No
  Sender: FDA-Public Use
  Company Number: A0566706A

PATIENT
  Age: 50 Year
  Sex: Female

DRUGS (2)
  1. REQUIP [Suspect]
     Indication: RESTLESS LEGS SYNDROME
     Dosage: 6MG THREE TIMES PER DAY
     Route: 048
     Dates: start: 20000701, end: 20050713
  2. NO CONCURRENT MEDICATION [Concomitant]

REACTIONS (1)
  - PATHOLOGICAL GAMBLING [None]
